FAERS Safety Report 7370159-5 (Version None)
Quarter: 2011Q1

REPORT INFORMATION
  Report Type: 
  Country: None (occurrence: None)
  Receive Date: 20110323
  Receipt Date: 20100414
  Transmission Date: 20110831
  Serious: Yes (Other)
  Sender: FDA-Public Use
  Company Number: US-ASTRAZENECA-2010SE16457

PATIENT
  Age: 657 Month
  Sex: Male
  Weight: 98.1 kg

DRUGS (6)
  1. SUNITINIB MALATE [Suspect]
     Indication: RENAL CELL CARCINOMA
     Dosage: SORAFENIB OR PLACEBO 400MG ONCE DAILY AND SUNITINIB MALATE OR PLACEBO 37.5MG ONCEDAILY FOR 1-4 WEEKS
     Route: 048
     Dates: start: 20090708
  2. TOPROL-XL [Suspect]
     Route: 048
  3. LISINOPRIL [Suspect]
     Route: 048
  4. HYDROCHLOROTHIAZIDE [Suspect]
     Route: 065
  5. TRAZODONE [Suspect]
     Route: 065
  6. SUNITINIB MALATE [Suspect]
     Dosage: SORAFENIB OR PLACEBO 400MG TWICE DAILY AND SUNITINIB MALATE OR PLACEBO 50MG ONCE DAILY FOR 1-4 WEEKS
     Route: 048

REACTIONS (5)
  - DIARRHOEA [None]
  - ABDOMINAL DISCOMFORT [None]
  - SYNCOPE [None]
  - CONTUSION [None]
  - NAUSEA [None]
